FAERS Safety Report 6301886-6 (Version None)
Quarter: 2009Q3

REPORT INFORMATION
  Report Type: 
  Country: None (occurrence: None)
  Receive Date: 20090807
  Receipt Date: 20090728
  Transmission Date: 20100115
  Serious: Yes (Life-Threatening, Hospitalization)
  Sender: FDA-Public Use
  Company Number: US-ROCHE-645545

PATIENT
  Sex: Male
  Weight: 105.2 kg

DRUGS (2)
  1. RIBAVIRIN [Suspect]
     Dosage: FREQUENCY: DAILY, PERMANENTLY DISCONTINUED, FORM: PILLS
     Route: 048
     Dates: start: 20090428, end: 20090705
  2. PEG-INTRON [Suspect]
     Dosage: PERMANENTLY DISCONTINUED
     Route: 058
     Dates: start: 20090428, end: 20090705

REACTIONS (5)
  - DEHYDRATION [None]
  - HYPOKALAEMIA [None]
  - NAUSEA [None]
  - RENAL FAILURE ACUTE [None]
  - VOMITING [None]
